FAERS Safety Report 8163675-X (Version None)
Quarter: 2012Q1

REPORT INFORMATION
  Report Type: 
  Country: None (occurrence: None)
  Receive Date: 20120221
  Receipt Date: 20120206
  Transmission Date: 20120608
  Serious: Yes (Life-Threatening, Hospitalization)
  Sender: FDA-Public Use
  Company Number: ACO_29394_2012

PATIENT
  Age: 33 Year
  Sex: Female

DRUGS (4)
  1. AMITIPTYLINE (AMITRIPTYLINE HYDROCHLORIDE) [Concomitant]
  2. FAMPYRA (DALFAMPRIDINE) TABLET, 10 MG [Suspect]
     Indication: MULTIPLE SCLEROSIS
     Dosage: 10 MG, BID, ORAL
     Route: 048
     Dates: start: 20111112, end: 20111119
  3. BACLOFEN [Concomitant]
  4. SPASMEX(TROSPIUM CHLORIDE) [Concomitant]

REACTIONS (3)
  - PARTIAL SEIZURES [None]
  - COMA [None]
  - EPILEPSY [None]
